FAERS Safety Report 11440151 (Version 1)
Quarter: 2015Q3

REPORT INFORMATION
  Report Type: Spontaneous
  Country: US (occurrence: None)
  Receive Date: 20150831
  Receipt Date: 20150831
  Transmission Date: 20151125
  Serious: Yes (Other)
  Sender: FDA-Public Use
  Company Number: None

PATIENT
  Age: 74 Year
  Sex: Female
  Weight: 65.32 kg

DRUGS (18)
  1. METFORMIN [Concomitant]
     Active Substance: METFORMIN HYDROCHLORIDE
  2. NOVOLOG [Concomitant]
     Active Substance: INSULIN ASPART
  3. ASPIRIN. [Concomitant]
     Active Substance: ASPIRIN
  4. ALBUTOROL INHALER [Concomitant]
  5. MAGNESIUM CITRATE. [Concomitant]
     Active Substance: MAGNESIUM CITRATE
  6. WOMEN^S MULTI-VITAMIN [Concomitant]
  7. BIOTIN [Concomitant]
     Active Substance: BIOTIN
  8. MELOXICAM. [Suspect]
     Active Substance: MELOXICAM
     Indication: GASTRIC DISORDER
  9. HIGH LIGNAN FLAXSEED [Concomitant]
  10. LISINOPRIL-HCTZ [Concomitant]
     Active Substance: HYDROCHLOROTHIAZIDE\LISINOPRIL
  11. LORATADINE. [Concomitant]
     Active Substance: LORATADINE
  12. EXTRA STRENGTH ACETAMINOPHEN [Concomitant]
     Active Substance: ACETAMINOPHEN
  13. LEVEMIR [Concomitant]
     Active Substance: INSULIN DETEMIR
  14. NASONEX [Concomitant]
     Active Substance: MOMETASONE FUROATE
  15. EPIPEN [Concomitant]
     Active Substance: EPINEPHRINE
  16. CALCUYN W/VITAMIN D [Concomitant]
  17. PRAVASTATIN [Concomitant]
     Active Substance: PRAVASTATIN\PRAVASTATIN SODIUM
  18. MELOXICAM. [Suspect]
     Active Substance: MELOXICAM
     Indication: ARTHRITIS

REACTIONS (10)
  - Flatulence [None]
  - Rash [None]
  - Lip swelling [None]
  - Salivary gland enlargement [None]
  - Lethargy [None]
  - Blood pressure increased [None]
  - Diarrhoea [None]
  - Asthenia [None]
  - Sinus disorder [None]
  - Eructation [None]

NARRATIVE: CASE EVENT DATE: 20150821
